FAERS Safety Report 18535308 (Version 1)
Quarter: 2020Q4

REPORT INFORMATION
  Report Type: Spontaneous
  Country: US (occurrence: US)
  Receive Date: 20201123
  Receipt Date: 20201123
  Transmission Date: 20210114
  Serious: Yes (Life-Threatening, Hospitalization, Other)
  Sender: FDA-Public Use
  Company Number: US-B.I. PHARMACEUTICALS,INC./RIDGEFIELD-2020-BI-063208

PATIENT
  Age: 52 Year
  Sex: Male

DRUGS (2)
  1. METFORMIN [Concomitant]
     Active Substance: METFORMIN HYDROCHLORIDE
     Indication: TYPE 2 DIABETES MELLITUS
     Route: 065
  2. JARDIANCE [Suspect]
     Active Substance: EMPAGLIFLOZIN
     Indication: TYPE 2 DIABETES MELLITUS
     Route: 065

REACTIONS (9)
  - Respiratory failure [Recovering/Resolving]
  - Euglycaemic diabetic ketoacidosis [Recovering/Resolving]
  - Hyperglycaemia [Recovering/Resolving]
  - Pneumonia [Recovering/Resolving]
  - Diabetic ketoacidosis [Recovering/Resolving]
  - COVID-19 [Unknown]
  - Hypotension [Recovering/Resolving]
  - Acidosis [Recovering/Resolving]
  - Renal failure [Recovering/Resolving]
